FAERS Safety Report 9457943 (Version 1)
Quarter: 2013Q3

REPORT INFORMATION
  Report Type: Spontaneous
  Country: DE (occurrence: DE)
  Receive Date: 20130814
  Receipt Date: 20130814
  Transmission Date: 20140515
  Serious: Yes (Other)
  Sender: FDA-Public Use
  Company Number: DE-BAYER-2013-097906

PATIENT
  Age: 86 Year
  Sex: Male
  Weight: 81 kg

DRUGS (20)
  1. AVALOX [Suspect]
     Indication: PNEUMONIA
     Dosage: 400 MG, QD
     Route: 048
     Dates: start: 201306, end: 201307
  2. KEIMAX [Concomitant]
     Indication: PNEUMONIA
  3. CLOPIDOGREL [Concomitant]
     Dosage: 75 MG, QD
  4. ADALAT [Concomitant]
     Dosage: 10 MG, PRN
  5. BISOPROLOL [Concomitant]
     Dosage: 5 MG, BID
  6. LOSARTAN [Concomitant]
  7. FUROSEMID [Concomitant]
     Dosage: 40 MG, QD
  8. FURESE [Concomitant]
     Dosage: 60 MG, QD
  9. L-THYROXIN [Concomitant]
     Dosage: 25 ?G, QD
  10. INEGY [Concomitant]
  11. ALLOPURINOL [Concomitant]
     Dosage: 150 MG, QD
  12. MICTONORM [Concomitant]
     Dosage: 30 MG, QD
  13. NOVOPULMON [Concomitant]
     Dosage: 1 PUFF(S), QD
     Route: 055
  14. FORMATRIS [Concomitant]
     Dosage: 1 PUFF(S), BID
     Route: 055
  15. BICALUTAMIDE [Concomitant]
     Dosage: 50 MG, QD
  16. LANTUS [Concomitant]
     Dosage: 10 DF, QD
  17. LANTUS [Concomitant]
     Dosage: 10 IU, QD
  18. SAUERSTOFFBAD [Concomitant]
     Dosage: PER/CMM, PRN
  19. DEKRISTOL [Concomitant]
     Dosage: 20000 IU, QD
  20. SALBUTAMOL AL [Concomitant]
     Dosage: 1 DF, OW
     Route: 055

REACTIONS (2)
  - Liver function test abnormal [Unknown]
  - Alpha 1 foetoprotein increased [Unknown]
